FAERS Safety Report 6328884-0 (Version None)
Quarter: 2009Q3

REPORT INFORMATION
  Report Type: 
  Country: None (occurrence: None)
  Receive Date: 20090824
  Receipt Date: 20090824
  Transmission Date: 20100115
  Serious: No
  Sender: FDA-Public Use
  Company Number: None

PATIENT

DRUGS (1)
  1. ZICAM SPRAY GEL [Suspect]
     Dates: start: 20081101, end: 20081101

REACTIONS (1)
  - NASAL DISCOMFORT [None]
